FAERS Safety Report 25019547 (Version 2)
Quarter: 2025Q1

REPORT INFORMATION
  Report Type: Report from Study
  Country: CA (occurrence: CA)
  Receive Date: 20250227
  Receipt Date: 20250319
  Transmission Date: 20250409
  Serious: Yes (Hospitalization, Other)
  Sender: ABBVIE
  Company Number: CA-ABBVIE-6153291

PATIENT
  Sex: Female

DRUGS (1)
  1. RINVOQ [Suspect]
     Active Substance: UPADACITINIB
     Indication: Dermatitis atopic
     Route: 048
     Dates: start: 20241031

REACTIONS (9)
  - Gallbladder operation [Recovering/Resolving]
  - Skin disorder [Unknown]
  - Dermatitis atopic [Unknown]
  - Abdominal pain [Unknown]
  - Rash [Unknown]
  - Lymphadenopathy [Unknown]
  - Eye infection [Unknown]
  - Eye irritation [Unknown]
  - Insomnia [Unknown]

NARRATIVE: CASE EVENT DATE: 20250201
